FAERS Safety Report 5377385-5 (Version None)
Quarter: 2007Q3

REPORT INFORMATION
  Report Type: 
  Country: None (occurrence: None)
  Receive Date: 20070703
  Receipt Date: 20070627
  Transmission Date: 20080115
  Serious: Yes (Other)
  Sender: FDA-Public Use
  Company Number: NLWYE930428JUN07

PATIENT
  Age: 55 Year
  Sex: Female

DRUGS (1)
  1. RAPAMUNE [Suspect]
     Dosage: UNKNOWN

REACTIONS (1)
  - CYSTITIS [None]
